FAERS Safety Report 17001472 (Version 3)
Quarter: 2019Q4

REPORT INFORMATION
  Report Type: Report from Study
  Country: US (occurrence: US)
  Receive Date: 20191106
  Receipt Date: 20191219
  Transmission Date: 20200122
  Serious: Yes (Hospitalization)
  Sender: FDA-Public Use
  Company Number: US-EISAI MEDICAL RESEARCH-EC-2019-062597

PATIENT
  Age: 66 Year
  Sex: Male
  Weight: 99 kg

DRUGS (1)
  1. LENVIMA [Suspect]
     Active Substance: LENVATINIB
     Indication: RENAL CELL CARCINOMA
     Route: 048
     Dates: start: 20190913, end: 20191021

REACTIONS (17)
  - Back pain [Unknown]
  - Ageusia [Recovering/Resolving]
  - Dizziness [Unknown]
  - Blood blister [Unknown]
  - Dyspnoea [Unknown]
  - Hypertension [Unknown]
  - Fatigue [Recovering/Resolving]
  - Blood iron decreased [Unknown]
  - Stomatitis [Unknown]
  - Arthralgia [Unknown]
  - Asthenia [Unknown]
  - Pulmonary oedema [Unknown]
  - Weight decreased [Unknown]
  - Myalgia [Unknown]
  - Nausea [Unknown]
  - Pancreatitis [Unknown]
  - Cough [Unknown]

NARRATIVE: CASE EVENT DATE: 2019
